FAERS Safety Report 23089974 (Version 2)
Quarter: 2023Q4

REPORT INFORMATION
  Report Type: Spontaneous
  Country: US (occurrence: US)
  Receive Date: 20231020
  Receipt Date: 20231023
  Transmission Date: 20240110
  Serious: No
  Sender: FDA-Public Use
  Company Number: US-PFIZER INC-PV202300098249

PATIENT
  Age: 61 Year
  Sex: Male
  Weight: 58.97 kg

DRUGS (4)
  1. MEKTOVI [Suspect]
     Active Substance: BINIMETINIB
     Indication: Malignant melanoma
     Dosage: UNK
     Route: 048
  2. MEKTOVI [Suspect]
     Active Substance: BINIMETINIB
     Dosage: 45 MG, 2X/DAY (TAKE THREE 15MG TABLETS BY MOUTH TWICE A DAY)
     Route: 048
  3. BRAFTOVI [Suspect]
     Active Substance: ENCORAFENIB
     Indication: Malignant melanoma
     Dosage: 450 MG, DAILY
     Route: 048
  4. BRAFTOVI [Suspect]
     Active Substance: ENCORAFENIB
     Indication: Neoplasm

REACTIONS (5)
  - Neoplasm progression [Not Recovered/Not Resolved]
  - Intentional overdose [Unknown]
  - Feeling abnormal [Unknown]
  - Poor quality product administered [Unknown]
  - Product temperature excursion issue [Unknown]
